FAERS Safety Report 5776544-7 (Version None)
Quarter: 2008Q2

REPORT INFORMATION
  Report Type: 
  Country: None (occurrence: None)
  Receive Date: 20080616
  Receipt Date: 20080529
  Transmission Date: 20081010
  Serious: Yes (Hospitalization)
  Sender: FDA-Public Use
  Company Number: 8033186

PATIENT
  Age: 73 Year
  Sex: Male

DRUGS (13)
  1. PREDNISOLONE [Suspect]
     Dosage: 20 MG PO
     Route: 048
     Dates: end: 20070422
  2. AMIODARONE HCL [Concomitant]
  3. ASPIRIN [Concomitant]
  4. ATENOLOL [Concomitant]
  5. CARBAMAZEPINE [Concomitant]
  6. DIPYRIDAMOLE [Concomitant]
  7. METOCLOPRAMIDE [Concomitant]
  8. NICORANDIL [Concomitant]
  9. PERINDOPRIL ERBUMINE [Concomitant]
  10. PYRIDOXINE [Concomitant]
  11. TEMAZEPAM [Concomitant]
  12. WARFARIN SODIUM [Concomitant]
  13. ATORVASTATIN [Suspect]
     Dosage: 20 MG PO
     Route: 048

REACTIONS (5)
  - DECREASED APPETITE [None]
  - DYSPNOEA [None]
  - LIVER DISORDER [None]
  - LIVER FUNCTION TEST ABNORMAL [None]
  - TREATMENT NONCOMPLIANCE [None]
